FAERS Safety Report 9058612 (Version 1)
Quarter: 2013Q1

REPORT INFORMATION
  Report Type: Spontaneous
  Country: US (occurrence: US)
  Receive Date: 20130211
  Receipt Date: 20130211
  Transmission Date: 20140127
  Serious: Yes (Death)
  Sender: FDA-Public Use
  Company Number: PHHY2013US012442

PATIENT
  Age: 70 Year
  Sex: Female

DRUGS (6)
  1. TERBINAFINE [Suspect]
  2. VORICONAZOLE [Suspect]
  3. CASPOFUNGIN [Suspect]
  4. POSACONAZOLE [Suspect]
  5. MICAFUNGIN [Suspect]
  6. AMPHOTERICIN [Suspect]

REACTIONS (2)
  - Death [Fatal]
  - Drug ineffective [Unknown]
